FAERS Safety Report 10246779 (Version 2)
Quarter: 2014Q2

REPORT INFORMATION
  Report Type: Spontaneous
  Country: FR (occurrence: FR)
  Receive Date: 20140619
  Receipt Date: 20140619
  Transmission Date: 20141212
  Serious: Yes (Other)
  Sender: FDA-Public Use
  Company Number: PHHY2014FR054582

PATIENT
  Age: 55 Year
  Sex: Male

DRUGS (2)
  1. EXFORGE [Suspect]
     Indication: HYPERTENSION
     Dosage: 1 DF, (VALS 80 MG, AMLO 5 MG) QD
     Dates: start: 20130916, end: 20140210
  2. EXFORGE [Suspect]
     Dosage: 1 DF, (VALS 160 MG, AMLO 5 MG) QD
     Dates: start: 20140210, end: 20140301

REACTIONS (2)
  - Diabetes mellitus [Recovering/Resolving]
  - Blood glucose increased [Recovering/Resolving]
